FAERS Safety Report 6425513 (Version 24)
Quarter: 2013Q3

REPORT INFORMATION
  Report Type: Spontaneous
  Country: US (occurrence: US)
  Receive Date: 20070924
  Receipt Date: 20130726
  Transmission Date: 20140515
  Serious: Yes (Death, Hospitalization, Other)
  Sender: FDA-Public Use
  Company Number: PHEH2007US12470

PATIENT
  Age: 73 Year
  Sex: Female

DRUGS (52)
  1. AREDIA [Suspect]
     Route: 042
  2. ZOMETA [Suspect]
     Indication: OSTEITIS DEFORMANS
     Route: 042
  3. PAMIDRONATE DISODIUM [Suspect]
  4. LEVAQUIN [Concomitant]
     Dosage: 250 MG, QD
  5. PERIDEX [Concomitant]
  6. CLINDAMYCIN [Concomitant]
  7. PENICILLIN NOS [Concomitant]
  8. CEPHALEXIN [Concomitant]
     Dates: start: 20060302, end: 20060525
  9. ANTIBIOTICS [Concomitant]
  10. ALLOPURINOL [Concomitant]
  11. AMIODARONE [Concomitant]
  12. PLAVIX [Concomitant]
  13. DIGOXIN [Concomitant]
  14. COLACE [Concomitant]
  15. ADVAIR DISKUS [Concomitant]
  16. LASIX [Concomitant]
  17. SYNTHROID [Concomitant]
  18. BENICAR [Concomitant]
  19. ACTOS                                   /USA/ [Concomitant]
  20. K-DUR [Concomitant]
  21. TRAVATAN [Concomitant]
  22. HYDROCHLOROTHIAZIDE [Concomitant]
  23. DILTIAZEM [Concomitant]
  24. CLONIDINE [Concomitant]
  25. COSOPT [Concomitant]
  26. FLAGYL [Concomitant]
  27. RESTORIL [Concomitant]
  28. ADVAIR [Concomitant]
  29. PROTONIX ^PHARMACIA^ [Concomitant]
  30. LEVOTHYROXINE [Concomitant]
  31. PEN-VEE-K [Concomitant]
  32. LORTAB [Concomitant]
  33. PRILOSEC [Concomitant]
  34. TYLENOL [Concomitant]
  35. ADVIL                              /00109201/ [Concomitant]
  36. ASPIRIN ^BAYER^ [Concomitant]
  37. PHENYTOIN SODIUM [Concomitant]
  38. TYLENOL WITH CODEINE [Concomitant]
  39. VITAMIN E [Concomitant]
  40. FOLIC ACID [Concomitant]
  41. VASOTEC [Concomitant]
  42. EYE DROPS [Concomitant]
     Indication: GLAUCOMA
  43. NEURONTIN [Concomitant]
  44. VICODIN [Concomitant]
  45. CYCLOBENZAPRINE [Concomitant]
  46. MICRO-K [Concomitant]
  47. TAGAMET [Concomitant]
  48. NYSTATIN [Concomitant]
     Dosage: 5 ML, 4 TIMES A DAY
  49. FOSAMAX [Concomitant]
  50. DILACOR [Concomitant]
  51. ZESTRIL [Concomitant]
  52. VIOXX [Concomitant]

REACTIONS (166)
  - Respiratory failure [Fatal]
  - Osteonecrosis of jaw [Unknown]
  - Pain [Unknown]
  - Infection [Unknown]
  - Deformity [Unknown]
  - Fistula [Unknown]
  - Pain in jaw [Unknown]
  - Swelling [Unknown]
  - Osteomyelitis [Unknown]
  - Discomfort [Unknown]
  - Hypophagia [Unknown]
  - Emotional distress [Unknown]
  - Anxiety [Unknown]
  - Life expectancy shortened [Unknown]
  - Anhedonia [Unknown]
  - Physical disability [Unknown]
  - Injury [Unknown]
  - Tooth infection [Unknown]
  - Thrombosis [Unknown]
  - Glossodynia [Unknown]
  - Bone disorder [Unknown]
  - Syncope [Unknown]
  - Acquired diaphragmatic eventration [Unknown]
  - Cardiac arrest [Unknown]
  - Tricuspid valve incompetence [Unknown]
  - Pulmonary valve incompetence [Unknown]
  - Left ventricular hypertrophy [Unknown]
  - Aortic arteriosclerosis [Unknown]
  - Wheezing [Unknown]
  - Sinus bradycardia [Unknown]
  - Gout [Unknown]
  - Sleep apnoea syndrome [Unknown]
  - Diabetes mellitus [Unknown]
  - Device related infection [Unknown]
  - Anaemia [Unknown]
  - Vertigo [Unknown]
  - Rheumatoid arthritis [Unknown]
  - Infection susceptibility increased [Unknown]
  - Hypotension [Unknown]
  - Leukocytosis [Unknown]
  - Hypothyroidism [Unknown]
  - Wound infection staphylococcal [Recovered/Resolved]
  - Local swelling [Unknown]
  - Aspiration joint [Unknown]
  - Abdominal discomfort [Unknown]
  - Arthralgia [Unknown]
  - Nasal ulcer [Unknown]
  - Irritable bowel syndrome [Unknown]
  - Renal failure [Recovering/Resolving]
  - Insomnia [Unknown]
  - Breast oedema [Unknown]
  - Pleural effusion [Unknown]
  - Atelectasis [Unknown]
  - Polyneuropathy [Unknown]
  - Beta haemolytic streptococcal infection [Unknown]
  - Occult blood [Unknown]
  - Fusobacterium infection [Unknown]
  - Klebsiella infection [Unknown]
  - Urinary tract infection bacterial [Unknown]
  - Urine abnormality [Unknown]
  - White blood cells urine positive [Unknown]
  - Abdominal pain [Unknown]
  - Diarrhoea [Unknown]
  - Bradycardia [Unknown]
  - Asthma [Unknown]
  - Pneumonia [Unknown]
  - Gastrooesophageal reflux disease [Unknown]
  - Supraventricular tachycardia [Unknown]
  - Arthritis bacterial [Unknown]
  - Sick sinus syndrome [Unknown]
  - Myocardial infarction [Unknown]
  - Joint stiffness [Unknown]
  - Atrial fibrillation [Unknown]
  - Incontinence [Unknown]
  - Mobility decreased [Unknown]
  - Inflammation [Unknown]
  - Rectal haemorrhage [Unknown]
  - Gastrointestinal haemorrhage [Unknown]
  - Gastric ulcer [Unknown]
  - Peptic ulcer [Unknown]
  - Cardiomegaly [Unknown]
  - Lymphadenopathy [Unknown]
  - Loose tooth [Unknown]
  - Tooth fracture [Unknown]
  - Intervertebral disc degeneration [Unknown]
  - Spondylolysis [Unknown]
  - Synovitis [Unknown]
  - Osteoarthritis [Unknown]
  - Carpal tunnel syndrome [Unknown]
  - Hemiparesis [Unknown]
  - Cardiac failure congestive [Unknown]
  - Heart rate irregular [Unknown]
  - Deep vein thrombosis [Unknown]
  - Arthropathy [Unknown]
  - Dyspnoea [Unknown]
  - Chest pain [Unknown]
  - Hypovolaemia [Unknown]
  - Obesity [Unknown]
  - Lymphangitis [Unknown]
  - Cellulitis [Unknown]
  - Presyncope [Unknown]
  - Carotid artery disease [Unknown]
  - Carotid artery stenosis [Unknown]
  - Hypertension [Unknown]
  - Diastolic dysfunction [Unknown]
  - Mitral valve calcification [Unknown]
  - Mitral valve incompetence [Unknown]
  - Pulmonary oedema [Unknown]
  - Urinary tract infection [Unknown]
  - Wound [Unknown]
  - Musculoskeletal chest pain [Unknown]
  - Back pain [Unknown]
  - Abscess [Unknown]
  - Arrhythmia [Unknown]
  - Tooth loss [Unknown]
  - Tinea cruris [Unknown]
  - Wound secretion [Unknown]
  - Dizziness [Unknown]
  - Diabetic gastroparesis [Unknown]
  - Haemorrhage [Unknown]
  - Thrombophlebitis [Unknown]
  - Joint contracture [Unknown]
  - Headache [Unknown]
  - Arteriosclerosis [Unknown]
  - Hypoacusis [Unknown]
  - Ear pain [Unknown]
  - Dyslipidaemia [Unknown]
  - Oropharyngeal pain [Unknown]
  - Neck mass [Unknown]
  - Osteolysis [Unknown]
  - Spinal osteoarthritis [Unknown]
  - Local swelling [Unknown]
  - Vomiting [Unknown]
  - Parotitis [Unknown]
  - Mass [Unknown]
  - Skin lesion [Unknown]
  - Tooth deposit [Unknown]
  - Periodontitis [Unknown]
  - Tenderness [Unknown]
  - Hearing impaired [Unknown]
  - Nasal congestion [Unknown]
  - Pneumothorax [Unknown]
  - Chronic obstructive pulmonary disease [Unknown]
  - Ear haemorrhage [Unknown]
  - Pruritus [Unknown]
  - Soft tissue haemorrhage [Unknown]
  - Excessive granulation tissue [Unknown]
  - Exposed bone in jaw [Unknown]
  - Granuloma [Unknown]
  - Bronchitis [Unknown]
  - Cerebrovascular accident [Unknown]
  - Osteoporosis [Unknown]
  - Pulmonary hypertension [Unknown]
  - Right atrial dilatation [Unknown]
  - Dilatation ventricular [Unknown]
  - Respiratory distress [Unknown]
  - Radius fracture [Unknown]
  - Mastitis [Unknown]
  - Lipoma [Unknown]
  - Mastoiditis [Unknown]
  - Pneumonia aspiration [Unknown]
  - Sepsis [Unknown]
  - Hemiplegia [Unknown]
  - Gait disturbance [Unknown]
  - Hyperlipidaemia [Unknown]
  - Glaucoma [Unknown]
